FAERS Safety Report 10697895 (Version 2)
Quarter: 2016Q2

REPORT INFORMATION
  Report Type: Report from Study
  Country: CA (occurrence: CA)
  Receive Date: 20150108
  Receipt Date: 20160425
  Transmission Date: 20160815
  Serious: No
  Sender: FDA-Public Use
  Company Number: CA-JNJFOC-20141219064

PATIENT
  Age: 59 Year
  Sex: Female

DRUGS (1)
  1. STELARA [Suspect]
     Active Substance: USTEKINUMAB
     Indication: PSORIASIS
     Route: 058
     Dates: start: 20100806

REACTIONS (4)
  - Notalgia paraesthetica [Unknown]
  - Arthritis [Unknown]
  - Urinary tract infection [Unknown]
  - Cutaneous lupus erythematosus [Unknown]

NARRATIVE: CASE EVENT DATE: 20121029
